FAERS Safety Report 16239228 (Version 1)
Quarter: 2019Q2

REPORT INFORMATION
  Report Type: Spontaneous
  Country: US (occurrence: US)
  Receive Date: 20190425
  Receipt Date: 20190425
  Transmission Date: 20190711
  Serious: No
  Sender: FDA-Public Use
  Company Number: US-SA-2019SA114033

PATIENT
  Age: 54 Year
  Sex: Female

DRUGS (1)
  1. DUPIXENT [Suspect]
     Active Substance: DUPILUMAB
     Indication: DERMATITIS ATOPIC
     Dosage: 300 MG, BID
     Route: 048
     Dates: start: 20190401

REACTIONS (4)
  - Inappropriate schedule of product administration [Unknown]
  - Incorrect route of product administration [Unknown]
  - Eye pruritus [Unknown]
  - Lacrimation increased [Unknown]
